FAERS Safety Report 24680173 (Version 2)
Quarter: 2025Q1

REPORT INFORMATION
  Report Type: Spontaneous
  Country: FR (occurrence: FR)
  Receive Date: 20241129
  Receipt Date: 20250107
  Transmission Date: 20250408
  Serious: Yes (Hospitalization)
  Sender: ROCHE
  Company Number: FR-ROCHE-10000131817

PATIENT
  Age: 59 Year
  Sex: Male

DRUGS (1)
  1. VABYSMO [Suspect]
     Active Substance: FARICIMAB-SVOA
     Indication: Chorioretinal disorder
     Route: 050
     Dates: start: 20240715, end: 20241018

REACTIONS (6)
  - Corneal endotheliitis [Unknown]
  - Ocular vasculitis [Not Recovered/Not Resolved]
  - Vitritis [Not Recovered/Not Resolved]
  - Uveitis [Not Recovered/Not Resolved]
  - Eye haemorrhage [Not Recovered/Not Resolved]
  - Off label use [Unknown]

NARRATIVE: CASE EVENT DATE: 20241001
